FAERS Safety Report 19000177 (Version 2)
Quarter: 2021Q2

REPORT INFORMATION
  Report Type: Report from Study
  Country: ES (occurrence: ES)
  Receive Date: 20210312
  Receipt Date: 20210402
  Transmission Date: 20210717
  Serious: Yes (Hospitalization)
  Sender: FDA-Public Use
  Company Number: ES-JNJFOC-20210320556

PATIENT
  Sex: Female

DRUGS (15)
  1. LIRAGLUTIDE [Concomitant]
     Active Substance: LIRAGLUTIDE
     Dosage: 1.2 MG, QD
     Dates: end: 20190906
  2. RIVAROXABAN [Suspect]
     Active Substance: RIVAROXABAN
     Indication: ATRIAL FIBRILLATION
     Dosage: UNK
     Route: 048
  3. FUROSEMIDE. [Concomitant]
     Active Substance: FUROSEMIDE
     Dosage: 160 MG, QD
     Dates: end: 20200121
  4. INSULIN [Concomitant]
     Active Substance: INSULIN NOS
     Dosage: 30 IU, QD
  5. AMLODIPINE [Concomitant]
     Active Substance: AMLODIPINE BESYLATE
     Dosage: 10 MG, QD
     Dates: start: 20190708, end: 20210121
  6. SEVELAMER [Concomitant]
     Active Substance: SEVELAMER
     Dosage: 1600 MG, QD
     Dates: start: 20190906
  7. CARVEDILOL. [Concomitant]
     Active Substance: CARVEDILOL
     Dosage: 25 MG, QD
  8. HEPARIN [Concomitant]
     Active Substance: HEPARIN SODIUM
     Dosage: 40 MG, QD
     Dates: start: 20190906
  9. DOXAZOSIN [Concomitant]
     Active Substance: DOXAZOSIN MESYLATE
     Dosage: 4 MG, QD
     Dates: end: 20190708
  10. ROSUVASTATIN. [Concomitant]
     Active Substance: ROSUVASTATIN
     Dosage: 20 MG, QD
  11. EZETIMIBE. [Concomitant]
     Active Substance: EZETIMIBE
     Dosage: 10 MG, QD
  12. IVABRADINE [Concomitant]
     Active Substance: IVABRADINE
     Dosage: 10 MG, QD
  13. ATORVASTATIN [Concomitant]
     Active Substance: ATORVASTATIN
     Dosage: 40 MG, QD
     Dates: end: 20190723
  14. CLOPIDOGREL [Concomitant]
     Active Substance: CLOPIDOGREL BISULFATE
     Dosage: 75 MG, QD
  15. HYDRALAZINE;ISOSORBIDE DINITRATE [Concomitant]
     Dosage: 10 MG, QD
     Dates: start: 20190606

REACTIONS (1)
  - Renal impairment [Recovered/Resolved]

NARRATIVE: CASE EVENT DATE: 20180920
